FAERS Safety Report 14456086 (Version 2)
Quarter: 2018Q1

REPORT INFORMATION
  Report Type: Report from Study
  Country: US (occurrence: US)
  Receive Date: 20180130
  Receipt Date: 20180206
  Transmission Date: 20180509
  Serious: No
  Sender: FDA-Public Use
  Company Number: PHEH2018US002625

PATIENT
  Sex: Female

DRUGS (2)
  1. ENTRESTO [Suspect]
     Active Substance: SACUBITRIL\VALSARTAN
     Dosage: SACUBITRIL 24 MG / VALSARTAN 26 MG
     Route: 048
  2. ENTRESTO [Suspect]
     Active Substance: SACUBITRIL\VALSARTAN
     Indication: PRODUCT USED FOR UNKNOWN INDICATION
     Dosage: SACUBITRIL 49 MG / VALSARTAN 51 MG
     Route: 048

REACTIONS (2)
  - Blood pressure decreased [Unknown]
  - Dizziness [Unknown]
